FAERS Safety Report 5514391-1 (Version None)
Quarter: 2007Q4

REPORT INFORMATION
  Report Type: 
  Country: None (occurrence: None)
  Receive Date: 20071113
  Receipt Date: 20070507
  Transmission Date: 20080405
  Serious: No
  Sender: FDA-Public Use
  Company Number: A0650254A

PATIENT
  Age: 63 Year
  Sex: Female

DRUGS (10)
  1. COREG [Suspect]
     Indication: HYPERTENSION
     Dosage: 50MG TWICE PER DAY
     Route: 048
     Dates: start: 20061101
  2. ALTACE [Concomitant]
  3. HYDROCHLOROTHIAZIDE [Concomitant]
  4. NITROGLYCERIN [Concomitant]
  5. TEKTURNA [Concomitant]
  6. ZETIA [Concomitant]
  7. LESCOL [Concomitant]
  8. ZYRTEC [Concomitant]
  9. FLONASE [Concomitant]
  10. ADVAIR DISKUS 100/50 [Concomitant]

REACTIONS (4)
  - DRUG INEFFECTIVE [None]
  - FATIGUE [None]
  - OVERDOSE [None]
  - PARAESTHESIA [None]
